FAERS Safety Report 9159972 (Version 1)
Quarter: 2013Q1

REPORT INFORMATION
  Report Type: Spontaneous
  Country: US (occurrence: None)
  Receive Date: 20130214
  Receipt Date: 20130214
  Transmission Date: 20140127
  Serious: Yes (Other)
  Sender: FDA-Public Use
  Company Number: AUR-APL-2013-01211

PATIENT
  Age: 82 Year
  Sex: Male

DRUGS (4)
  1. GABAPENTIN (GABAPENTIN) [Suspect]
     Indication: PRODUCT USED FOR UNKNOWN INDICATION
  2. FLUOXETINE [Concomitant]
  3. AMLODIPINE [Concomitant]
  4. CARBAMAZEPINE [Concomitant]

REACTIONS (4)
  - Rash maculo-papular [None]
  - Rash pruritic [None]
  - Pseudolymphoma [None]
  - Lymphocytic infiltration [None]
